FAERS Safety Report 23329595 (Version 3)
Quarter: 2024Q1

REPORT INFORMATION
  Report Type: Report from Study
  Country: US (occurrence: US)
  Receive Date: 20231222
  Receipt Date: 20240117
  Transmission Date: 20240410
  Serious: Yes (Hospitalization, Other)
  Sender: FDA-Public Use
  Company Number: US-BEH-2023166416

PATIENT
  Age: 20 Year
  Sex: Male
  Weight: 92.9 kg

DRUGS (4)
  1. BERINERT [Suspect]
     Active Substance: HUMAN C1-ESTERASE INHIBITOR
     Indication: Hereditary angioedema
     Dosage: 5000 INTERNATIONAL UNIT/KILOGRAM, BIW
     Route: 058
  2. BERINERT [Suspect]
     Active Substance: HUMAN C1-ESTERASE INHIBITOR
     Indication: Prophylaxis
     Dosage: UNK
     Route: 058
  3. BERINERT [Suspect]
     Active Substance: HUMAN C1-ESTERASE INHIBITOR
     Dosage: UNK
     Route: 058
     Dates: start: 20231208
  4. BERINERT [Suspect]
     Active Substance: HUMAN C1-ESTERASE INHIBITOR
     Dosage: 5001 INTERNATIONAL UNIT/KILOGRAM AS ORDERED
     Route: 058

REACTIONS (10)
  - Hereditary angioedema [Unknown]
  - Hereditary angioedema [Unknown]
  - Seizure [Unknown]
  - Seizure [Unknown]
  - Seizure [Unknown]
  - Cerebral disorder [Unknown]
  - Hereditary angioedema [Unknown]
  - No adverse event [Unknown]
  - Therapy cessation [Unknown]
  - Seizure [Unknown]

NARRATIVE: CASE EVENT DATE: 20231201
